FAERS Safety Report 6757534-4 (Version None)
Quarter: 2010Q2

REPORT INFORMATION
  Report Type: 
  Country: None (occurrence: None)
  Receive Date: 20100607
  Receipt Date: 20100527
  Transmission Date: 20101027
  Serious: No
  Sender: FDA-Public Use
  Company Number: 2009BI035233

PATIENT
  Age: 68 Year
  Sex: Female

DRUGS (2)
  1. TYSABRI [Suspect]
     Indication: MULTIPLE SCLEROSIS
     Route: 042
     Dates: start: 20090219
  2. ATENOLOL [Concomitant]
     Indication: HYPERTENSION
     Dates: start: 20010101

REACTIONS (8)
  - BALANCE DISORDER [None]
  - BLOOD PRESSURE INCREASED [None]
  - COGNITIVE DISORDER [None]
  - DRUG INEFFECTIVE [None]
  - FEELING COLD [None]
  - GAIT DISTURBANCE [None]
  - HYPERSENSITIVITY [None]
  - JC VIRUS TEST POSITIVE [None]
